FAERS Safety Report 16105540 (Version 1)
Quarter: 2019Q1

REPORT INFORMATION
  Report Type: Spontaneous
  Country: US (occurrence: US)
  Receive Date: 20190322
  Receipt Date: 20190322
  Transmission Date: 20190418
  Serious: Yes (Other)
  Sender: FDA-Public Use
  Company Number: US-ROCHE-2285553

PATIENT
  Age: 20 Year
  Sex: Female
  Weight: 63.56 kg

DRUGS (4)
  1. VALCYTE [Suspect]
     Active Substance: VALGANCICLOVIR HYDROCHLORIDE
     Indication: HUMAN HERPESVIRUS 6 INFECTION
     Dosage: FOR 3 DAYS
     Route: 048
     Dates: start: 20190305, end: 20190307
  2. ARMOUR THYROID [Concomitant]
     Active Substance: THYROID, PORCINE
     Dosage: ONGOING:YES
     Route: 065
     Dates: start: 201807
  3. VALCYTE [Suspect]
     Active Substance: VALGANCICLOVIR HYDROCHLORIDE
     Dosage: 100 MG IN THE AM; 100 MG IN THE PM
     Route: 048
     Dates: start: 20190308
  4. LICORICE ROOT [Concomitant]
     Active Substance: LICORICE
     Indication: POSTURAL ORTHOSTATIC TACHYCARDIA SYNDROME
     Dosage: ONGOING:YES
     Route: 065

REACTIONS (9)
  - Cold sweat [Unknown]
  - Fatigue [Not Recovered/Not Resolved]
  - Pallor [Unknown]
  - Nasopharyngitis [Unknown]
  - Muscular weakness [Unknown]
  - Intentional product use issue [Unknown]
  - Muscle fatigue [Unknown]
  - Heart rate increased [Unknown]
  - Off label use [Unknown]

NARRATIVE: CASE EVENT DATE: 20190305
